FAERS Safety Report 5498338-2 (Version None)
Quarter: 2007Q4

REPORT INFORMATION
  Report Type: 
  Country: None (occurrence: None)
  Receive Date: 20071025
  Receipt Date: 20070502
  Transmission Date: 20080405
  Serious: No
  Sender: FDA-Public Use
  Company Number: A0649724A

PATIENT
  Sex: Female

DRUGS (3)
  1. ADVAIR DISKUS 100/50 [Suspect]
     Dosage: 1PUFF SINGLE DOSE
     Route: 055
     Dates: start: 20070412, end: 20070412
  2. ASMACORT [Concomitant]
  3. ALBUTEROL [Concomitant]

REACTIONS (1)
  - DYSPNOEA [None]
